FAERS Safety Report 14389929 (Version 1)
Quarter: 2018Q1

REPORT INFORMATION
  Report Type: Spontaneous
  Country: US (occurrence: US)
  Receive Date: 20180115
  Receipt Date: 20180115
  Transmission Date: 20180509
  Serious: No
  Sender: FDA-Public Use
  Company Number: US-BIOGEN-2018BI00508320

PATIENT
  Sex: Female

DRUGS (1)
  1. TYSABRI [Suspect]
     Active Substance: NATALIZUMAB
     Indication: PRODUCT USED FOR UNKNOWN INDICATION
     Route: 065

REACTIONS (17)
  - Paraesthesia [Unknown]
  - Neuralgia [Unknown]
  - Tension [Unknown]
  - Ear discomfort [Unknown]
  - Ear pain [Unknown]
  - Tinnitus [Unknown]
  - Confusional state [Unknown]
  - Erythema [Recovered/Resolved]
  - Ear haemorrhage [Unknown]
  - Mental disorder [Unknown]
  - Pain [Unknown]
  - Drug dose omission [Unknown]
  - Hypoacusis [Unknown]
  - Reaction to excipient [Unknown]
  - Neuropathy peripheral [Unknown]
  - Nuclear magnetic resonance imaging abnormal [Unknown]
  - Feeling abnormal [Unknown]
